FAERS Safety Report 6506649-4 (Version None)
Quarter: 2009Q4

REPORT INFORMATION
  Report Type: 
  Country: None (occurrence: None)
  Receive Date: 20091221
  Receipt Date: 20091209
  Transmission Date: 20100525
  Serious: Yes (Death)
  Sender: FDA-Public Use
  Company Number: NL-ROCHE-672350

PATIENT
  Age: 22 Year
  Sex: Male

DRUGS (1)
  1. ROACCUTANE [Suspect]
     Indication: ACNE CONGLOBATA
     Route: 065

REACTIONS (3)
  - COMPLETED SUICIDE [None]
  - DECREASED APPETITE [None]
  - SLEEP DISORDER [None]
